FAERS Safety Report 12581960 (Version 1)
Quarter: 2016Q3

REPORT INFORMATION
  Report Type: Spontaneous
  Country: US (occurrence: US)
  Receive Date: 20160722
  Receipt Date: 20160722
  Transmission Date: 20161109
  Serious: No
  Sender: FDA-Public Use
  Company Number: US-AMGEN-USASP2016091656

PATIENT
  Age: 40 Year
  Sex: Male

DRUGS (1)
  1. ENBREL [Suspect]
     Active Substance: ETANERCEPT
     Indication: PRODUCT USED FOR UNKNOWN INDICATION
     Dosage: UNK UNK, QWK
     Route: 065

REACTIONS (5)
  - Injection site rash [Unknown]
  - Injection site discomfort [Recovered/Resolved]
  - Injection site discolouration [Unknown]
  - Injection site pain [Unknown]
  - Injection site injury [Recovered/Resolved]

NARRATIVE: CASE EVENT DATE: 201607
